FAERS Safety Report 7114516-0 (Version None)
Quarter: 2010Q4

REPORT INFORMATION
  Report Type: 
  Country: None (occurrence: None)
  Receive Date: 20101119
  Receipt Date: 20101109
  Transmission Date: 20110411
  Serious: Yes (Death, Other)
  Sender: FDA-Public Use
  Company Number: JP-MERCK-1011USA01632

PATIENT
  Age: 76 Year
  Sex: Male
  Weight: 45 kg

DRUGS (5)
  1. PEPCID [Suspect]
     Indication: PROPHYLAXIS
     Route: 042
  2. ZYVOX [Suspect]
     Indication: PNEUMONIA
     Route: 042
     Dates: start: 20080514, end: 20080529
  3. SOLU-CORTEF [Concomitant]
     Route: 065
     Dates: start: 20080514, end: 20080528
  4. LANDIOLOL HYDROCHLORIDE [Concomitant]
     Route: 065
  5. MEROPENEM [Suspect]
     Indication: PNEUMONIA
     Route: 042
     Dates: start: 20090514, end: 20090523

REACTIONS (3)
  - HYPERNATRAEMIA [None]
  - PNEUMONIA [None]
  - THROMBOCYTOPENIA [None]
